FAERS Safety Report 8514223-3 (Version None)
Quarter: 2012Q3

REPORT INFORMATION
  Report Type: 
  Country: None (occurrence: None)
  Receive Date: 20120717
  Receipt Date: 20120706
  Transmission Date: 20120928
  Serious: Yes (Life-Threatening, Hospitalization, Disabling)
  Sender: FDA-Public Use
  Company Number: US-BAYER-2012-019432

PATIENT
  Age: 23 Year
  Sex: Female
  Weight: 68.027 kg

DRUGS (21)
  1. TRIMETHOPRIM [Concomitant]
     Dosage: UNK
     Route: 048
     Dates: start: 20081124
  2. KEPPRA [Concomitant]
  3. PHENYTOIN SODIUM [Concomitant]
  4. DOXYCYCLINE [Concomitant]
     Dosage: 100 MG, BID FOR 7 DAYS
     Route: 048
     Dates: start: 20081203
  5. ROCEPHIN [Concomitant]
  6. AMIODARONE HCL [Concomitant]
  7. CALCIUM CARBONATE [Concomitant]
  8. YAZ [Suspect]
     Dosage: UNK
     Dates: start: 20090101
  9. ZITHROMAX [Concomitant]
  10. AMBIEN [Concomitant]
  11. LORAZEPAM [Concomitant]
  12. VERSED [Concomitant]
     Dosage: UNK
     Dates: start: 20081203
  13. FENTANYL [Concomitant]
     Dosage: UNK
     Dates: start: 20081203
  14. IBUPROFEN [Concomitant]
     Dosage: 800 MG, UNK
     Route: 048
     Dates: start: 20081203
  15. ACYCLOVIR [Concomitant]
  16. HYDROXYCUT [Concomitant]
     Dosage: UNK
     Route: 048
  17. METRONIDAZOLE [Concomitant]
     Dosage: 250 MG, UNK
     Route: 048
     Dates: start: 20081124
  18. ANTIINFLAMMATORY/ANTIRHEUMATIC PRODUCTS [Concomitant]
     Dosage: UNK
     Route: 048
  19. INSULIN [INSULIN] [Concomitant]
  20. GABAPENTIN [Concomitant]
     Indication: SLEEP DISORDER
  21. SEROQUEL [Concomitant]

REACTIONS (6)
  - CARDIAC ARREST [None]
  - MIGRAINE [None]
  - HYPOXIC-ISCHAEMIC ENCEPHALOPATHY [None]
  - SCAR [None]
  - MEMORY IMPAIRMENT [None]
  - EMOTIONAL DISTRESS [None]
